FAERS Safety Report 19698156 (Version 2)
Quarter: 2021Q3

REPORT INFORMATION
  Report Type: Spontaneous
  Country: BR (occurrence: BR)
  Receive Date: 20210813
  Receipt Date: 20210826
  Transmission Date: 20211014
  Serious: Yes (Death)
  Sender: FDA-Public Use
  Company Number: BR-BAYER-2021-192503

PATIENT
  Age: 59 Year
  Sex: Male

DRUGS (1)
  1. NEXAVAR [Suspect]
     Active Substance: SORAFENIB
     Indication: HEPATOCELLULAR CARCINOMA
     Dosage: 400 MG, BID
     Route: 048
     Dates: start: 20210521, end: 20210626

REACTIONS (7)
  - Hepatocellular carcinoma [Fatal]
  - Hepatic failure [Fatal]
  - Diabetes mellitus [Fatal]
  - Metastases to lung [Fatal]
  - Renal failure [Fatal]
  - Drug ineffective [None]
  - Hypertension [Fatal]
